FAERS Safety Report 7170007-2 (Version None)
Quarter: 2010Q4

REPORT INFORMATION
  Report Type: 
  Country: None (occurrence: None)
  Receive Date: 20101217
  Receipt Date: 20101214
  Transmission Date: 20110411
  Serious: Yes (Death)
  Sender: FDA-Public Use
  Company Number: GR-SANOFI-AVENTIS-2010SA075918

PATIENT
  Age: 60 Year
  Sex: Male

DRUGS (2)
  1. CLEXANE [Suspect]
     Route: 065
     Dates: end: 20101105
  2. LEVOTHYROXINE [Concomitant]
     Indication: THYROID DISORDER
     Dates: end: 20101105

REACTIONS (1)
  - PULMONARY OEDEMA [None]
